FAERS Safety Report 12929851 (Version 3)
Quarter: 2018Q3

REPORT INFORMATION
  Report Type: Spontaneous
  Country: US (occurrence: US)
  Receive Date: 20161110
  Receipt Date: 20180814
  Transmission Date: 20181010
  Serious: No
  Sender: FDA-Public Use
  Company Number: US-PFIZER INC-2016521605

PATIENT
  Age: 35 Year
  Sex: Female

DRUGS (3)
  1. IBRANCE [Suspect]
     Active Substance: PALBOCICLIB
     Indication: NEOPLASM
     Dosage: 125 MG, CYCLIC [TAKE 1 CAPSULE BY MOUTH DAILY ON DAYS 1?21 EVERY 28 DAYS AND 7 DAYS OFF]
     Route: 048
     Dates: start: 20161014
  2. IBRANCE [Suspect]
     Active Substance: PALBOCICLIB
     Dosage: 125 MG, CYCLIC [TAKE 1 CAPSULE BY MOUTH DAILY ON DAYS 1?21 EVERY 28 DAYS AND 7 DAYS OFF]
     Route: 048
     Dates: start: 201611
  3. LETROZOLE. [Suspect]
     Active Substance: LETROZOLE
     Dosage: UNK
     Dates: start: 20161014

REACTIONS (1)
  - Nausea [Recovered/Resolved]
